FAERS Safety Report 12196968 (Version 2)
Quarter: 2016Q2

REPORT INFORMATION
  Report Type: Spontaneous
  Country: DE (occurrence: DE)
  Receive Date: 20160321
  Receipt Date: 20160505
  Transmission Date: 20160815
  Serious: Yes (Other)
  Sender: FDA-Public Use
  Company Number: DE-BAUSCH-BL-2016-006564

PATIENT
  Age: 77 Year
  Sex: Male

DRUGS (2)
  1. ZYCLARA [Suspect]
     Active Substance: IMIQUIMOD
     Indication: BASAL CELL CARCINOMA
     Route: 061
     Dates: start: 201512, end: 20160104
  2. MARCUMAR [Concomitant]
     Active Substance: PHENPROCOUMON
     Indication: PRODUCT USED FOR UNKNOWN INDICATION

REACTIONS (13)
  - Dizziness [Unknown]
  - Chills [Unknown]
  - Laceration [Unknown]
  - Circulatory collapse [Unknown]
  - Contusion [Unknown]
  - Clavicle fracture [Unknown]
  - Fall [Unknown]
  - Eye injury [Unknown]
  - Arthralgia [Unknown]
  - Asthenia [Unknown]
  - Loss of consciousness [Unknown]
  - Skin reaction [Unknown]
  - Nausea [Unknown]

NARRATIVE: CASE EVENT DATE: 20160105
